FAERS Safety Report 14291002 (Version 3)
Quarter: 2018Q2

REPORT INFORMATION
  Report Type: Report from Study
  Country: DE (occurrence: DE)
  Receive Date: 20171215
  Receipt Date: 20180419
  Transmission Date: 20180711
  Serious: Yes (Hospitalization)
  Sender: FDA-Public Use
  Company Number: DE-AMGEN-DEUNI2017168960

PATIENT
  Age: 18 Year
  Sex: Male

DRUGS (1)
  1. ETANERCEPT [Suspect]
     Active Substance: ETANERCEPT
     Indication: JUVENILE IDIOPATHIC ARTHRITIS
     Dosage: 50 MG, WEEKLY
     Route: 065
     Dates: start: 201402

REACTIONS (2)
  - Tonsillitis [Recovered/Resolved]
  - Peritonsillitis [Recovered/Resolved]

NARRATIVE: CASE EVENT DATE: 20170315
